FAERS Safety Report 6503207-2 (Version None)
Quarter: 2009Q4

REPORT INFORMATION
  Report Type: 
  Country: None (occurrence: None)
  Receive Date: 20091217
  Receipt Date: 20091209
  Transmission Date: 20100525
  Serious: Yes (Hospitalization)
  Sender: FDA-Public Use
  Company Number: CH-JNJFOC-20091202638

PATIENT
  Age: 53 Year
  Sex: Male

DRUGS (4)
  1. DURAGESIC-100 [Suspect]
     Indication: PAIN
     Route: 062
     Dates: start: 20091017, end: 20091017
  2. MS CONTIN [Suspect]
     Indication: PAIN
     Route: 048
  3. MS CONTIN [Suspect]
     Route: 048
  4. LYRICA [Concomitant]
     Route: 065

REACTIONS (4)
  - ACCIDENTAL OVERDOSE [None]
  - DYSPHAGIA [None]
  - MALAISE [None]
  - MEDICATION ERROR [None]
